FAERS Safety Report 18702151 (Version 2)
Quarter: 2021Q1

REPORT INFORMATION
  Report Type: Other
  Country: DE (occurrence: DE)
  Receive Date: 20210105
  Receipt Date: 20210203
  Transmission Date: 20210419
  Serious: Yes (Other)
  Sender: FDA-Public Use
  Company Number: DE-STRIDES ARCOLAB LIMITED-2020SP016585

PATIENT
  Age: 42 Year
  Sex: Female

DRUGS (8)
  1. NOVALGIN (METAMIZOLE SODIUM) [Suspect]
     Active Substance: METAMIZOLE SODIUM
     Indication: PRODUCT USED FOR UNKNOWN INDICATION
     Dosage: 500 MG, PRN (20 DROPS)
     Route: 065
     Dates: end: 202002
  2. OXYCODONE [Suspect]
     Active Substance: OXYCODONE
     Indication: SPINAL PAIN
     Dosage: 15 MILLIGRAM, QD
     Route: 048
     Dates: start: 2015
  3. VITAMIN B COMPLEX [Concomitant]
     Active Substance: CYANOCOBALAMIN\DEXPANTHENOL\NIACINAMIDE\PYRIDOXINE HYDROCHLORIDE\RIBOFLAVIN 5^-PHOSPHATE SODIUM\THIAMINE HYDROCHLORIDE\VITAMIN B COMPLEX
     Indication: PRODUCT USED FOR UNKNOWN INDICATION
     Dosage: UNK
     Route: 065
  4. MAGNESIUM [Concomitant]
     Active Substance: MAGNESIUM
     Indication: PRODUCT USED FOR UNKNOWN INDICATION
     Dosage: UNK
     Route: 065
  5. GABAPENTIN. [Suspect]
     Active Substance: GABAPENTIN
     Indication: SPINAL PAIN
     Dosage: 300 MILLIGRAM, QD
     Route: 048
     Dates: start: 2015
  6. FINGOLIMOD. [Suspect]
     Active Substance: FINGOLIMOD
     Dosage: 0.5 MILLIGRAM, QD, CAPSULE HARD
     Route: 048
  7. FINGOLIMOD. [Suspect]
     Active Substance: FINGOLIMOD
     Indication: MULTIPLE SCLEROSIS
     Dosage: 0.5 MILLIGRAM, QD, CAPSULE HARD
     Route: 048
  8. PANTOPRAZOLE [Concomitant]
     Active Substance: PANTOPRAZOLE
     Indication: PRODUCT USED FOR UNKNOWN INDICATION
     Dosage: 40 MILLIGRAM, QD
     Route: 065

REACTIONS (10)
  - Platelet count increased [Unknown]
  - Haematocrit increased [Unknown]
  - Lymphocyte morphology abnormal [Unknown]
  - Blood creatinine increased [Unknown]
  - CD8 lymphocytes decreased [Unknown]
  - CD4 lymphocytes decreased [Unknown]
  - Gamma-glutamyltransferase increased [Recovered/Resolved]
  - Monocyte count increased [Unknown]
  - Leukopenia [Not Recovered/Not Resolved]
  - Gamma-glutamyltransferase increased [Recovered/Resolved]

NARRATIVE: CASE EVENT DATE: 201508
